FAERS Safety Report 24054648 (Version 2)
Quarter: 2024Q3

REPORT INFORMATION
  Report Type: Spontaneous
  Country: TW (occurrence: TW)
  Receive Date: 20240705
  Receipt Date: 20240712
  Transmission Date: 20241017
  Serious: No
  Sender: PFIZER
  Company Number: TW-PFIZER INC-PV202400087053

PATIENT
  Age: 68 Year
  Sex: Male

DRUGS (3)
  1. DACOMITINIB [Suspect]
     Active Substance: DACOMITINIB
     Indication: Lung adenocarcinoma
     Dosage: 45 MG, CYCLIC, DAILY
  2. DACOMITINIB [Suspect]
     Active Substance: DACOMITINIB
     Dosage: 30 MG, DAILY
  3. DACOMITINIB [Suspect]
     Active Substance: DACOMITINIB
     Dosage: 15 MG, DAILY, OVER A PERIOD OF 5 MONTHS

REACTIONS (4)
  - RET gene fusion positive [Recovering/Resolving]
  - Dermatitis acneiform [Unknown]
  - Paronychia [Unknown]
  - Oedema peripheral [Unknown]
